FAERS Safety Report 6409148-3 (Version None)
Quarter: 2009Q4

REPORT INFORMATION
  Report Type: 
  Country: None (occurrence: None)
  Receive Date: 20091021
  Receipt Date: 20091008
  Transmission Date: 20100525
  Serious: Yes (Other)
  Sender: FDA-Public Use
  Company Number: PHEH2009US13435

PATIENT
  Age: 66 Year
  Sex: Female
  Weight: 82.086 kg

DRUGS (6)
  1. RECLAST [Suspect]
     Indication: OSTEOPOROSIS
     Dosage: 5 MG, ONCE/SINGLE
     Route: 042
     Dates: start: 20090825
  2. CRESTOR [Concomitant]
  3. LEVOTHYROXINE SODIUM [Concomitant]
  4. NEXIUM [Concomitant]
  5. CARTIA XT [Concomitant]
  6. CELEBREX [Concomitant]

REACTIONS (6)
  - BLOOD CREATININE INCREASED [None]
  - BLOOD UREA INCREASED [None]
  - CHEST DISCOMFORT [None]
  - DIZZINESS [None]
  - FEELING HOT [None]
  - NAUSEA [None]
